FAERS Safety Report 4498798-X (Version None)
Quarter: 2004Q4

REPORT INFORMATION
  Report Type: 
  Country: None (occurrence: None)
  Receive Date: 20041111
  Receipt Date: 20040909
  Transmission Date: 20050328
  Serious: Yes (Hospitalization)
  Sender: FDA-Public Use
  Company Number: 200413376FR

PATIENT
  Age: 21 Year
  Sex: Female
  Weight: 62 kg

DRUGS (2)
  1. KETEK [Suspect]
     Indication: TONSILLITIS
     Route: 048
     Dates: start: 20040827, end: 20040901
  2. ACETAMINOPHEN [Concomitant]
     Indication: PHARYNGOLARYNGEAL PAIN
     Route: 048
     Dates: start: 20040827, end: 20040829

REACTIONS (12)
  - ABDOMINAL PAIN [None]
  - ALANINE AMINOTRANSFERASE INCREASED [None]
  - ASPARTATE AMINOTRANSFERASE INCREASED [None]
  - ASTHENIA [None]
  - CHOLELITHIASIS [None]
  - GAMMA-GLUTAMYLTRANSFERASE INCREASED [None]
  - HEPATIC TRAUMA [None]
  - LOSS OF CONSCIOUSNESS [None]
  - MALAISE [None]
  - PROTHROMBIN TIME SHORTENED [None]
  - VOMITING [None]
  - WHITE BLOOD CELL COUNT INCREASED [None]
